FAERS Safety Report 24399256 (Version 3)
Quarter: 2024Q4

REPORT INFORMATION
  Report Type: Spontaneous
  Country: IT (occurrence: IT)
  Receive Date: 20241004
  Receipt Date: 20241105
  Transmission Date: 20250115
  Serious: Yes (Death, Life-Threatening, Hospitalization, Other)
  Sender: GILEAD
  Company Number: IT-GILEAD-2024-0689812

PATIENT
  Age: 31 Year
  Sex: Male
  Weight: 86 kg

DRUGS (6)
  1. LENACAPAVIR [Suspect]
     Active Substance: LENACAPAVIR
     Indication: HIV infection
     Dosage: 463.2 MG, 2 INJECTIONS EVERY 6 MONTHS
     Route: 058
     Dates: start: 20230201, end: 20240629
  2. DESCOVY [Suspect]
     Active Substance: EMTRICITABINE\TENOFOVIR ALAFENAMIDE FUMARATE
     Indication: HIV infection
     Dosage: 1 DOSAGE FORM, QD
     Route: 048
     Dates: start: 20230201, end: 20240629
  3. IBALIZUMAB [Concomitant]
     Active Substance: IBALIZUMAB
     Dosage: 200 MG, 4 VIALS EVERY WEEK
     Route: 042
     Dates: start: 20230201, end: 20240629
  4. FOSTEMSAVIR [Concomitant]
     Active Substance: FOSTEMSAVIR
  5. ZIDOVUDINE [Concomitant]
     Active Substance: ZIDOVUDINE
     Dosage: 250 MG, BID
     Route: 048
     Dates: start: 20230201, end: 20240629
  6. RUKOBIA [Concomitant]
     Active Substance: FOSTEMSAVIR TROMETHAMINE
     Dosage: 600 MG, BID
     Route: 048
     Dates: start: 20230201, end: 20240629

REACTIONS (3)
  - Sudden death [Fatal]
  - Chest pain [Recovered/Resolved]
  - Chest pain [Recovered/Resolved]

NARRATIVE: CASE EVENT DATE: 20240618
